FAERS Safety Report 17534598 (Version 2)
Quarter: 2020Q1

REPORT INFORMATION
  Report Type: Spontaneous
  Country: US (occurrence: US)
  Receive Date: 20200312
  Receipt Date: 20200313
  Transmission Date: 20200409
  Serious: No
  Sender: FDA-Public Use
  Company Number: US-PFIZER INC-2020108636

PATIENT
  Sex: Female

DRUGS (2)
  1. LYRICA [Suspect]
     Active Substance: PREGABALIN
     Dosage: UNK
  2. LYRICA [Suspect]
     Active Substance: PREGABALIN
     Dosage: 150 MG, 1X/DAY [AT NIGHT]
     Dates: end: 2019

REACTIONS (7)
  - Tachyphrenia [Unknown]
  - Anxiety [Unknown]
  - Intentional product use issue [Unknown]
  - Panic attack [Unknown]
  - Withdrawal syndrome [Unknown]
  - Crying [Unknown]
  - Drug ineffective [Unknown]
